FAERS Safety Report 23523221 (Version 4)
Quarter: 2024Q1

REPORT INFORMATION
  Report Type: Spontaneous
  Country: JP (occurrence: JP)
  Receive Date: 20240214
  Receipt Date: 20240305
  Transmission Date: 20240410
  Serious: Yes (Life-Threatening, Hospitalization, Other)
  Sender: FDA-Public Use
  Company Number: JP-ONO-2024JP002745

PATIENT
  Age: 79 Year
  Sex: Male

DRUGS (3)
  1. OPDIVO [Suspect]
     Active Substance: NIVOLUMAB
     Indication: Gastric cancer
     Route: 041
     Dates: start: 20240129, end: 20240129
  2. SOX [GIMERACIL;OTERACIL;OXALIPLATIN;TEGAFUR] [Concomitant]
     Indication: Gastric cancer
     Dosage: UNK
     Dates: start: 20240129
  3. OXALIPLATIN [Concomitant]
     Active Substance: OXALIPLATIN
     Indication: Gastric cancer
     Dosage: UNK
     Dates: start: 20240129

REACTIONS (18)
  - Cardio-respiratory arrest [Recovered/Resolved]
  - Cytokine release syndrome [Not Recovered/Not Resolved]
  - Altered state of consciousness [Not Recovered/Not Resolved]
  - Shock [Unknown]
  - Hypoxic-ischaemic encephalopathy [Unknown]
  - Immune-mediated enterocolitis [Not Recovered/Not Resolved]
  - Diarrhoea [Not Recovered/Not Resolved]
  - Coagulopathy [Unknown]
  - Troponin increased [Unknown]
  - Pyrexia [Unknown]
  - Platelet count decreased [Unknown]
  - Renal disorder [Unknown]
  - Liver disorder [Unknown]
  - Blood creatine phosphokinase increased [Unknown]
  - Cytokine storm [Unknown]
  - Brain death [Unknown]
  - Serum ferritin increased [Unknown]
  - Interleukin level increased [Recovering/Resolving]

NARRATIVE: CASE EVENT DATE: 20240129
